FAERS Safety Report 5216425-0 (Version None)
Quarter: 2007Q1

REPORT INFORMATION
  Report Type: 
  Country: None (occurrence: None)
  Receive Date: 20070118
  Receipt Date: 20070109
  Transmission Date: 20070707
  Serious: Yes (Death)
  Sender: FDA-Public Use
  Company Number: 233794

PATIENT
  Age: 59 Year
  Sex: Female

DRUGS (4)
  1. HERCEPTIN [Suspect]
     Indication: BREAST CANCER
     Dosage: SEE IMAGE
     Dates: start: 20040329, end: 20050322
  2. LEVOXYL [Concomitant]
  3. COLCHICINE (COLCHICINE) [Concomitant]
  4. FOSAMAX [Concomitant]

REACTIONS (4)
  - GLIOBLASTOMA [None]
  - HEADACHE [None]
  - PYREXIA [None]
  - VISUAL DISTURBANCE [None]
